FAERS Safety Report 11663736 (Version 2)
Quarter: 2016Q1

REPORT INFORMATION
  Report Type: Spontaneous
  Country: DK (occurrence: DK)
  Receive Date: 20151027
  Receipt Date: 20160303
  Transmission Date: 20160525
  Serious: Yes (Death)
  Sender: FDA-Public Use
  Company Number: DK-ASTRAZENECA-2015SF01471

PATIENT
  Age: 29455 Day
  Sex: Male
  Weight: 102 kg

DRUGS (9)
  1. LOSARSTAD [Concomitant]
  2. SIMVASTATIN. [Concomitant]
     Active Substance: SIMVASTATIN
  3. HJERTEMAGNYL [Suspect]
     Active Substance: ASPIRIN\MAGNESIUM OXIDE
     Indication: ACUTE MYOCARDIAL INFARCTION
     Route: 048
     Dates: start: 20150814
  4. BRILIQUE [Suspect]
     Active Substance: TICAGRELOR
     Indication: ACUTE MYOCARDIAL INFARCTION
     Route: 048
     Dates: start: 20150814
  5. VICTOZA [Concomitant]
     Active Substance: LIRAGLUTIDE
  6. METOPROLOL. [Concomitant]
     Active Substance: METOPROLOL
  7. PANTOPRAZOLE [Concomitant]
     Active Substance: PANTOPRAZOLE SODIUM
  8. CENTYL WITH POTASSIUM CHLORIDE [Concomitant]
     Active Substance: BENDROFLUMETHIAZIDE\POTASSIUM CHLORIDE
  9. METFORMIN [Concomitant]
     Active Substance: METFORMIN HYDROCHLORIDE

REACTIONS (1)
  - Cerebral haemorrhage [Fatal]

NARRATIVE: CASE EVENT DATE: 20150930
